FAERS Safety Report 14888819 (Version 1)
Quarter: 2018Q2

REPORT INFORMATION
  Report Type: Spontaneous
  Country: CN (occurrence: CN)
  Receive Date: 20180513
  Receipt Date: 20180513
  Transmission Date: 20180711
  Serious: Yes (Other)
  Sender: FDA-Public Use
  Company Number: CN-BAXTER-2018BAX013911

PATIENT
  Age: 59 Year
  Sex: Female
  Weight: 54.6 kg

DRUGS (2)
  1. NUOXIN [Suspect]
     Active Substance: CISPLATIN
     Indication: CHEMOTHERAPY
     Dosage: ABOUT 5 ML OF 500 ML NS + 45 MG NUOXIN
     Route: 041
     Dates: start: 20180314, end: 20180314
  2. 0.9% SODIUM CHLORIDE INJECTION [Suspect]
     Active Substance: SODIUM CHLORIDE
     Indication: MEDICATION DILUTION
     Dosage: ABOUT 5 ML OF 500 ML NS + 45 MG NUOXIN
     Route: 041
     Dates: start: 20180314, end: 20180314

REACTIONS (3)
  - Flushing [Recovered/Resolved]
  - Pruritus generalised [Recovered/Resolved]
  - Blood pressure increased [Recovered/Resolved]

NARRATIVE: CASE EVENT DATE: 20180314
